FAERS Safety Report 7208066-0 (Version None)
Quarter: 2011Q1

REPORT INFORMATION
  Report Type: 
  Country: None (occurrence: None)
  Receive Date: 20110104
  Receipt Date: 20101230
  Transmission Date: 20110831
  Serious: No
  Sender: FDA-Public Use
  Company Number: US-PFIZER INC-2010182410

PATIENT

DRUGS (1)
  1. LYRICA [Suspect]

REACTIONS (2)
  - OROPHARYNGEAL PAIN [None]
  - DYSPHAGIA [None]
